FAERS Safety Report 10204593 (Version 2)
Quarter: 2014Q2

REPORT INFORMATION
  Report Type: Spontaneous
  Country: JP (occurrence: JP)
  Receive Date: 20140529
  Receipt Date: 20140616
  Transmission Date: 20141212
  Serious: Yes (Hospitalization)
  Sender: FDA-Public Use
  Company Number: JP-KOWA-2014S1000623

PATIENT
  Age: 55 Year
  Sex: Male
  Weight: 66 kg

DRUGS (7)
  1. LIVALO [Suspect]
     Indication: DYSLIPIDAEMIA
     Route: 048
     Dates: start: 2011, end: 2013
  2. ROPION [Interacting]
     Dates: start: 2013, end: 2013
  3. PROPOFOL [Concomitant]
     Dates: start: 2013, end: 2013
  4. ROCURONIUM BROMIDE [Concomitant]
     Dates: start: 2013, end: 2013
  5. SEVOFLURANE [Concomitant]
     Dates: start: 2013, end: 2013
  6. REMIFENTANIL HYDROCHLORIDE [Concomitant]
     Dates: start: 2013, end: 2013
  7. FENTANYL [Concomitant]
     Dates: start: 2013, end: 2013

REACTIONS (2)
  - Rhabdomyolysis [Recovered/Resolved]
  - Drug interaction [Recovered/Resolved]
